FAERS Safety Report 9214563 (Version 2)
Quarter: 2013Q2

REPORT INFORMATION
  Report Type: Report from Study
  Country: CA (occurrence: CA)
  Receive Date: 20130405
  Receipt Date: 20130409
  Transmission Date: 20140414
  Serious: Yes (Other)
  Sender: FDA-Public Use
  Company Number: CA-ROCHE-1173930

PATIENT
  Age: 49 Year
  Sex: Male

DRUGS (2)
  1. ZELBORAF [Suspect]
     Indication: METASTATIC MALIGNANT MELANOMA
     Route: 048
     Dates: start: 201211, end: 2013
  2. ZELBORAF [Suspect]
     Route: 048
     Dates: start: 201212

REACTIONS (5)
  - Disease progression [Unknown]
  - Drug ineffective [Unknown]
  - Skin reaction [Unknown]
  - Convulsion [Unknown]
  - Pain [Unknown]
